FAERS Safety Report 7526361-2 (Version None)
Quarter: 2011Q3

REPORT INFORMATION
  Report Type: 
  Country: None (occurrence: None)
  Receive Date: 20110603
  Receipt Date: 20110603
  Transmission Date: 20111222
  Serious: Yes (Other)
  Sender: FDA-Public Use
  Company Number: None

PATIENT
  Age: 34 Year
  Sex: Female
  Weight: 72.7 kg

DRUGS (8)
  1. PAXIL [Concomitant]
  2. MEDICAL MARIJUANA [Concomitant]
  3. CALCIUM/VIT D [Concomitant]
  4. ATIVAN [Concomitant]
  5. PANVAC [Concomitant]
  6. ISOVUE-300 [Suspect]
     Indication: COMPUTERISED TOMOGRAM
     Dosage: 130ML IV X 1 1 DOSE
     Route: 042
     Dates: start: 20100408
  7. TRAZODONE HCL [Concomitant]
  8. HERCEPTIN [Concomitant]

REACTIONS (2)
  - TONGUE DISORDER [None]
  - ORAL PRURITUS [None]
